FAERS Safety Report 6510149-5 (Version None)
Quarter: 2009Q4

REPORT INFORMATION
  Report Type: 
  Country: None (occurrence: None)
  Receive Date: 20091222
  Receipt Date: 20091216
  Transmission Date: 20100525
  Serious: Yes (Hospitalization, Other)
  Sender: FDA-Public Use
  Company Number: B0618970A

PATIENT
  Sex: Male

DRUGS (4)
  1. ZOFRAN [Suspect]
     Indication: NAUSEA
     Dosage: 4MG TWICE PER DAY
     Dates: start: 20090201, end: 20090727
  2. METOCLOPRAMIDE HYDROCHLORIDE [Suspect]
     Indication: NAUSEA
     Dosage: 10MG TWICE PER DAY
     Dates: start: 20090201, end: 20090201
  3. ITINEROL B6 [Suspect]
     Indication: NAUSEA
     Dates: start: 20090201, end: 20090401
  4. TRAZODONE HCL [Suspect]
     Indication: DEPRESSION
     Dosage: 50MG PER DAY
     Dates: start: 20070101, end: 20090801

REACTIONS (4)
  - DRUG EXPOSURE DURING PREGNANCY [None]
  - DRUG EXPOSURE VIA BREAST MILK [None]
  - FEEDING DISORDER OF INFANCY OR EARLY CHILDHOOD [None]
  - PREMATURE BABY [None]
